FAERS Safety Report 17721474 (Version 6)
Quarter: 2020Q3

REPORT INFORMATION
  Report Type: Report from Study
  Country: JP (occurrence: JP)
  Receive Date: 20200429
  Receipt Date: 20200925
  Transmission Date: 20201102
  Serious: Yes (Hospitalization)
  Sender: FDA-Public Use
  Company Number: JP-ROCHE-2590840

PATIENT
  Age: 70 Year
  Sex: Female
  Weight: 55 kg

DRUGS (13)
  1. LANSOPRAZOLE OD [Concomitant]
     Active Substance: LANSOPRAZOLE
     Indication: GASTRITIS PROPHYLAXIS
     Route: 048
  2. LOXOPROFEN NA [Concomitant]
     Active Substance: LOXOPROFEN SODIUM
     Indication: ANALGESIC THERAPY
     Route: 048
     Dates: end: 20200603
  3. LOXOPROFEN SODIUM HYDRATE [Concomitant]
     Active Substance: LOXOPROFEN SODIUM DIHYDRATE
     Indication: ANALGESIC THERAPY
     Dosage: BEGINNING OF DOSAGE DAY: INVESTIGATIONAL AGENT BEFORE ADMINISTRATION
     Route: 048
  4. ATEZOLIZUMAB. [Suspect]
     Active Substance: ATEZOLIZUMAB
     Dosage: MOST RECENT DOSE WAS RECEIVED ON 14/FEB/2020
     Route: 041
     Dates: start: 20200124
  5. LOXOPROFEN NA [Concomitant]
     Active Substance: LOXOPROFEN SODIUM
     Indication: ANALGESIC THERAPY
     Route: 062
     Dates: start: 20191122, end: 20200603
  6. DEXTROMETHORPHAN HYDROBROMIDE MONOHYDRATE [Concomitant]
     Indication: COUGH
     Route: 048
     Dates: start: 20191213
  7. PEMETREXED SODIUM HYDRATE [Suspect]
     Active Substance: PEMETREXED
     Indication: LUNG ADENOCARCINOMA
     Route: 041
     Dates: start: 20190718, end: 20191213
  8. PEMETREXED SODIUM HYDRATE [Suspect]
     Active Substance: PEMETREXED
     Dosage: MOST RECENT DOSE WAS RECEIVED ON 14/FEB/2020
     Route: 041
     Dates: start: 20200124
  9. BEVACIZUMAB. [Suspect]
     Active Substance: BEVACIZUMAB
     Indication: LUNG ADENOCARCINOMA
     Route: 041
     Dates: start: 20190718, end: 20191213
  10. ATEZOLIZUMAB. [Suspect]
     Active Substance: ATEZOLIZUMAB
     Indication: LUNG ADENOCARCINOMA
     Route: 041
     Dates: start: 20190718
  11. CARBOPLATIN. [Suspect]
     Active Substance: CARBOPLATIN
     Indication: LUNG ADENOCARCINOMA
     Dosage: AUC5?MOST RECENT DOSE WAS RECEIVED ON 20/SEP/2019
     Route: 041
     Dates: start: 20190718
  12. BEVACIZUMAB. [Suspect]
     Active Substance: BEVACIZUMAB
     Dosage: MOST RECENT DOSE WAS RECEIVED ON 14/FEB/2020
     Route: 041
     Dates: start: 20200214
  13. AMLODIPINE [Concomitant]
     Active Substance: AMLODIPINE BESYLATE
     Indication: HYPERTENSION
     Route: 048
     Dates: start: 20190830

REACTIONS (1)
  - Autoimmune colitis [Recovered/Resolved]

NARRATIVE: CASE EVENT DATE: 20200307
